FAERS Safety Report 6414896-5 (Version None)
Quarter: 2009Q4

REPORT INFORMATION
  Report Type: 
  Country: None (occurrence: None)
  Receive Date: 20091026
  Receipt Date: 20090421
  Transmission Date: 20100525
  Serious: No
  Sender: FDA-Public Use
  Company Number: US-ABBOTT-09P-163-0565929-00

PATIENT
  Sex: Female
  Weight: 61.744 kg

DRUGS (17)
  1. LUPRON DEPOT [Suspect]
     Indication: PREMENSTRUAL SYNDROME
     Route: 050
     Dates: start: 20090305
  2. PIROXICAM [Suspect]
     Indication: BACK PAIN
     Route: 048
     Dates: start: 20090301, end: 20090301
  3. MEDRIN [Suspect]
     Indication: MIGRAINE
     Dosage: AS REQUIRED
  4. PIRSTEIQ [Suspect]
     Indication: DEPRESSION
     Dates: start: 20090301
  5. KLONOPIN [Suspect]
     Indication: DEPRESSION
     Dates: end: 20090301
  6. KLONOPIN [Suspect]
     Dates: start: 20090301
  7. PIROCAM [Concomitant]
     Indication: PREMENSTRUAL SYNDROME
  8. COLAZAPAM [Concomitant]
     Indication: MENTAL DISORDER
     Dosage: 1MG IN AM, 2MG IN PM
     Route: 048
  9. DRAMAMINE [Concomitant]
     Indication: INSOMNIA
     Dosage: 100MG AT NIGHT
     Route: 048
  10. CENTRUM PERFORMANCE [Concomitant]
     Indication: VITAMIN SUPPLEMENTATION
     Route: 048
  11. OMEGA FISH OIL [Concomitant]
     Indication: MINERAL SUPPLEMENTATION
     Route: 048
  12. ALBUTEROL [Concomitant]
     Indication: INTERSTITIAL LUNG DISEASE
     Route: 055
  13. NASONEX [Concomitant]
     Indication: SEASONAL ALLERGY
     Route: 055
  14. PROAIR HFA [Concomitant]
     Indication: ACUTE RESPIRATORY DISTRESS SYNDROME
     Route: 055
  15. EXTRA VITAMIN C [Concomitant]
     Indication: VITAMIN SUPPLEMENTATION
     Dosage: DAILY
     Route: 048
  16. VITAMIN B COMPLEX CAP [Concomitant]
     Indication: ALOPECIA
     Dosage: DAILY
  17. NICOTINE [Concomitant]
     Indication: SMOKING CESSATION THERAPY
     Dosage: GUM AS NEEDED
     Route: 048

REACTIONS (14)
  - BACK PAIN [None]
  - CHRONIC SINUSITIS [None]
  - DYSPAREUNIA [None]
  - FAECALOMA [None]
  - HAIR GROWTH ABNORMAL [None]
  - INCONTINENCE [None]
  - LOSS OF LIBIDO [None]
  - NASOPHARYNGITIS [None]
  - PYREXIA [None]
  - RASH [None]
  - RED BLOOD CELL COUNT DECREASED [None]
  - THYROID CYST [None]
  - VAGINAL HAEMORRHAGE [None]
  - WEIGHT INCREASED [None]
